FAERS Safety Report 5273210-1 (Version None)
Quarter: 2007Q1

REPORT INFORMATION
  Report Type: 
  Country: None (occurrence: None)
  Receive Date: 20070319
  Receipt Date: 20070306
  Transmission Date: 20070707
  Serious: Yes (Death, Other)
  Sender: FDA-Public Use
  Company Number: MC200700118

PATIENT
  Age: 75 Year
  Sex: Female
  Weight: 96.1 kg

DRUGS (6)
  1. ANGIOMAX [Suspect]
     Indication: CARDIAC VALVE DISEASE
     Dosage: SEE IMAGE
     Route: 040
     Dates: start: 20070207, end: 20070207
  2. ANGIOMAX [Suspect]
     Indication: HEPARIN-INDUCED THROMBOCYTOPENIA
     Dosage: SEE IMAGE
     Route: 040
     Dates: start: 20070207, end: 20070207
  3. ANGIOMAX [Suspect]
     Indication: CARDIAC VALVE DISEASE
     Dosage: SEE IMAGE
     Route: 040
     Dates: start: 20070207, end: 20070207
  4. ANGIOMAX [Suspect]
     Indication: HEPARIN-INDUCED THROMBOCYTOPENIA
     Dosage: SEE IMAGE
     Route: 040
     Dates: start: 20070207, end: 20070207
  5. ANGIOMAX [Suspect]
     Indication: CARDIAC VALVE DISEASE
     Dosage: SEE IMAGE
     Route: 040
     Dates: start: 20070207, end: 20070207
  6. ANGIOMAX [Suspect]
     Indication: HEPARIN-INDUCED THROMBOCYTOPENIA
     Dosage: SEE IMAGE
     Route: 040
     Dates: start: 20070207, end: 20070207

REACTIONS (4)
  - ENDOTRACHEAL INTUBATION COMPLICATION [None]
  - HEPARIN-INDUCED THROMBOCYTOPENIA [None]
  - POST PROCEDURAL HAEMORRHAGE [None]
  - WOUND SECRETION [None]
